FAERS Safety Report 23366568 (Version 1)
Quarter: 2024Q1

REPORT INFORMATION
  Report Type: Spontaneous
  Country: US (occurrence: US)
  Receive Date: 20240104
  Receipt Date: 20240104
  Transmission Date: 20240410
  Serious: Yes (Hospitalization, Other)
  Sender: FDA-Public Use
  Company Number: US-SENTISSAG-2023SAGLIT-00003

PATIENT
  Age: 74 Year
  Sex: Female

DRUGS (4)
  1. LIDOCAINE HYDROCHLORIDE [Suspect]
     Active Substance: LIDOCAINE HYDROCHLORIDE
     Indication: Lumbar radiculopathy
     Dosage: 2 ML OF 1% LIDOCAINE
  2. METHYLPREDNISOLONE [Suspect]
     Active Substance: METHYLPREDNISOLONE
     Indication: Lumbar radiculopathy
     Dosage: 2 ML  OF 40 MG/ML DEPO- MEDROL
  3. IOHEXOL [Suspect]
     Active Substance: IOHEXOL
     Indication: Lumbar radiculopathy
  4. SODIUM CHLORIDE [Concomitant]
     Active Substance: SODIUM CHLORIDE
     Indication: Lumbar radiculopathy

REACTIONS (1)
  - Meningitis chemical [Recovered/Resolved]
